FAERS Safety Report 4554931-2 (Version None)
Quarter: 2004Q4

REPORT INFORMATION
  Report Type: 
  Country: None (occurrence: None)
  Receive Date: 20041222
  Receipt Date: 20041122
  Transmission Date: 20050328
  Serious: Yes (Other)
  Sender: FDA-Public Use
  Company Number: 210636

PATIENT
  Age: 72 Year
  Sex: Female

DRUGS (9)
  1. AVASTIN [Suspect]
     Indication: COLORECTAL CANCER METASTATIC
     Dosage: 300 MG INTRAVENOUS
     Route: 042
     Dates: start: 20041105
  2. FLUOROURACIL [Concomitant]
  3. OXALIPLATIN (OXALIPLATIN) [Concomitant]
  4. LEUCOVORIN CALCIUM [Concomitant]
  5. PROCRIT (EPOETIN ALFA) [Concomitant]
  6. KYTRIL [Concomitant]
  7. DECADRON [Concomitant]
  8. SODIUM CHLORIDE [Concomitant]
  9. D5 (DEXTROSE) [Concomitant]

REACTIONS (1)
  - BLOOD PRESSURE INCREASED [None]
